FAERS Safety Report 11054705 (Version 1)
Quarter: 2015Q2

REPORT INFORMATION
  Report Type: Spontaneous
  Country: US (occurrence: None)
  Receive Date: 20150421
  Receipt Date: 20150421
  Transmission Date: 20150821
  Serious: Yes (Other)
  Sender: FDA-Public Use
  Company Number: None

PATIENT
  Age: 72 Year
  Sex: Female
  Weight: 72.58 kg

DRUGS (12)
  1. SYNTHROID [Concomitant]
     Active Substance: LEVOTHYROXINE SODIUM
  2. BENICAR [Concomitant]
     Active Substance: OLMESARTAN MEDOXOMIL
  3. BAYER ASPIRIN [Concomitant]
     Active Substance: ASPIRIN
  4. VITAMIN D3 [Concomitant]
     Active Substance: CHOLECALCIFEROL
  5. SENIOR MULTI VITAMINS [Concomitant]
  6. CIPRO [Suspect]
     Active Substance: CIPROFLOXACIN HYDROCHLORIDE
     Indication: URINARY TRACT INFECTION
     Dosage: 2 PILLS 2 PILLS A DAY BY MOUTH
     Route: 048
     Dates: start: 20150127, end: 20150202
  7. COQ10 [Concomitant]
     Active Substance: UBIDECARENONE
  8. CALCIUM [Concomitant]
     Active Substance: CALCIUM
  9. CALCIUM [Concomitant]
     Active Substance: CALCIUM
  10. SIMVASTATIN. [Concomitant]
     Active Substance: SIMVASTATIN
  11. TRIAMT/HCT2 [Concomitant]
  12. ZINC [Concomitant]
     Active Substance: ZINC\ZINC CHLORIDE

REACTIONS (6)
  - Abasia [None]
  - Gastrointestinal disorder [None]
  - Myalgia [None]
  - Arthralgia [None]
  - Asthenia [None]
  - Dizziness [None]

NARRATIVE: CASE EVENT DATE: 20150203
